FAERS Safety Report 10290933 (Version 1)
Quarter: 2014Q3

REPORT INFORMATION
  Report Type: Spontaneous
  Country: US (occurrence: None)
  Receive Date: 20140708
  Receipt Date: 20140708
  Transmission Date: 20150326
  Serious: No
  Sender: FDA-Public Use
  Company Number: None

PATIENT
  Age: 53 Year
  Sex: Female
  Weight: 58.51 kg

DRUGS (1)
  1. ZOLPIDEM [Suspect]
     Active Substance: ZOLPIDEM\ZOLPIDEM TARTRATE
     Indication: MIDDLE INSOMNIA
     Dosage: 1/2 PILL EACH NIGHT, ONCE DAILY, TAKEN BY MOUTH
     Route: 048
     Dates: start: 20070706, end: 20140705

REACTIONS (4)
  - Thinking abnormal [None]
  - Malaise [None]
  - Feeling abnormal [None]
  - Depression [None]

NARRATIVE: CASE EVENT DATE: 20140707
